FAERS Safety Report 24195116 (Version 1)
Quarter: 2024Q3

REPORT INFORMATION
  Report Type: Spontaneous
  Country: US (occurrence: US)
  Receive Date: 20240809
  Receipt Date: 20240809
  Transmission Date: 20241016
  Serious: No
  Sender: ANI
  Company Number: US-ANIPHARMA-2024-US-031928

PATIENT
  Age: 41 Year
  Sex: Male

DRUGS (1)
  1. CORTICOTROPIN [Suspect]
     Active Substance: CORTICOTROPIN
     Indication: Scleritis
     Dosage: INJECT 80 UNITS (1ML) SUBCUTANEOUSLY TWO TIMES A WEEK AS DIRECTED.
     Route: 058
     Dates: start: 202405

REACTIONS (9)
  - Vascular injury [Unknown]
  - Injection site bruising [Unknown]
  - Mood swings [Unknown]
  - Headache [Unknown]
  - Haematochezia [Unknown]
  - Contraindicated product administered [Not Recovered/Not Resolved]
  - Fatigue [Unknown]
  - Mood altered [Unknown]
  - Insomnia [Unknown]

NARRATIVE: CASE EVENT DATE: 20240501
